FAERS Safety Report 5011767-6 (Version None)
Quarter: 2006Q2

REPORT INFORMATION
  Report Type: 
  Country: None (occurrence: None)
  Receive Date: 20060526
  Receipt Date: 20060522
  Transmission Date: 20061013
  Serious: Yes (Other)
  Sender: FDA-Public Use
  Company Number: US-JNJFOC-20060505080

PATIENT
  Age: 70 Year
  Sex: Male

DRUGS (4)
  1. ARESTIN [Suspect]
     Indication: PERIODONTITIS
  2. NIACIN [Concomitant]
  3. ZYRTEC [Concomitant]
  4. LIPITOR [Concomitant]

REACTIONS (1)
  - TRACHEAL OEDEMA [None]
